FAERS Safety Report 11886144 (Version 1)
Quarter: 2016Q1

REPORT INFORMATION
  Report Type: Spontaneous
  Country: US (occurrence: US)
  Receive Date: 20160104
  Receipt Date: 20160104
  Transmission Date: 20160526
  Serious: No
  Sender: FDA-Public Use
  Company Number: US-PFIZER INC-2015447816

PATIENT
  Sex: Female
  Weight: 56.69 kg

DRUGS (2)
  1. CELEBREX [Suspect]
     Active Substance: CELECOXIB
     Indication: SCIATICA
     Dosage: 200 MG, 1X/DAY
     Route: 048
     Dates: start: 2004
  2. CELEBREX [Suspect]
     Active Substance: CELECOXIB
     Indication: BACK DISORDER
     Dosage: 200 MG, 1X/DAY
     Route: 048
     Dates: start: 20151001

REACTIONS (4)
  - Nasopharyngitis [Not Recovered/Not Resolved]
  - Fall [Unknown]
  - Vertigo [Recovering/Resolving]
  - Drug effect incomplete [Unknown]

NARRATIVE: CASE EVENT DATE: 2009
